FAERS Safety Report 8059309-5 (Version None)
Quarter: 2012Q1

REPORT INFORMATION
  Report Type: 
  Country: None (occurrence: None)
  Receive Date: 20120120
  Receipt Date: 20120118
  Transmission Date: 20120608
  Serious: No
  Sender: FDA-Public Use
  Company Number: US-B.I. PHARMACEUTICALS,INC./RIDGEFIELD-2011-BP-23350BP

PATIENT
  Sex: Male

DRUGS (12)
  1. FLOMAX [Concomitant]
     Indication: BENIGN PROSTATIC HYPERPLASIA
     Dosage: 0.4 MG
     Route: 048
     Dates: start: 20050101
  2. VICODIN [Concomitant]
     Indication: PAIN
     Route: 048
     Dates: start: 20090101
  3. METOPROLOL [Concomitant]
     Indication: CARDIAC DISORDER
  4. LEVOTHYROXINE SODIUM [Concomitant]
     Indication: HYPOTHYROIDISM
     Dosage: 88 MCG
     Route: 048
     Dates: start: 20090101
  5. PRADAXA [Suspect]
     Indication: ATRIAL FIBRILLATION
     Dosage: 300 MG
     Route: 048
     Dates: start: 20101101
  6. NEXIUM [Concomitant]
     Indication: DYSPEPSIA
  7. DIAZEPAM [Concomitant]
  8. PAXIL [Concomitant]
  9. VALIUM [Concomitant]
     Indication: ANXIETY
     Dosage: 5 MG
     Route: 048
     Dates: start: 20090101
  10. METOPROLOL [Concomitant]
     Indication: HYPERTENSION
     Dosage: 25 MG
     Route: 048
     Dates: start: 20050101
  11. NEXIUM [Concomitant]
     Indication: BURNING SENSATION
     Dosage: 40 MG
     Route: 048
     Dates: start: 20100101
  12. DIGOXIN [Concomitant]
     Indication: CARDIAC DISORDER
     Dosage: 250 MCG
     Route: 048
     Dates: start: 20100101

REACTIONS (3)
  - PROSTATITIS [None]
  - DYSPEPSIA [None]
  - CHEST PAIN [None]
